FAERS Safety Report 19419292 (Version 1)
Quarter: 2021Q2

REPORT INFORMATION
  Report Type: Spontaneous
  Country: NO (occurrence: NO)
  Receive Date: 20210615
  Receipt Date: 20210615
  Transmission Date: 20210717
  Serious: Yes (Disabling, Other)
  Sender: FDA-Public Use
  Company Number: NO-PFIZER INC-2021653198

PATIENT
  Sex: Male
  Weight: 107 kg

DRUGS (5)
  1. ZOLOFT [Suspect]
     Active Substance: SERTRALINE HYDROCHLORIDE
     Indication: RESTLESSNESS
     Dosage: 100?150 MG
     Route: 048
     Dates: start: 2004, end: 202005
  2. VIVAL [Concomitant]
     Active Substance: DIAZEPAM
     Indication: RESTLESSNESS
     Dosage: 5 MG, AS NEEDED
  3. RITALIN [Concomitant]
     Active Substance: METHYLPHENIDATE HYDROCHLORIDE
     Indication: IMPULSE-CONTROL DISORDER
     Dosage: 60?90 MG
     Dates: start: 2016
  4. RITALIN [Concomitant]
     Active Substance: METHYLPHENIDATE HYDROCHLORIDE
     Indication: IMPULSE-CONTROL DISORDER
     Dosage: 10 MG
     Dates: start: 2017
  5. ADUVANZ [Concomitant]
     Active Substance: LISDEXAMFETAMINE DIMESYLATE
     Indication: DISTURBANCE IN ATTENTION
     Dosage: 60 MG
     Dates: start: 202010

REACTIONS (6)
  - Personality disorder [Recovered/Resolved]
  - Economic problem [Recovered/Resolved]
  - Impulse-control disorder [Recovered/Resolved]
  - Apathy [Recovered/Resolved]
  - Depression [Unknown]
  - Social anxiety disorder [Recovering/Resolving]

NARRATIVE: CASE EVENT DATE: 2005
